FAERS Safety Report 8930999 (Version 3)
Quarter: 2013Q1

REPORT INFORMATION
  Report Type: Spontaneous
  Country: US (occurrence: US)
  Receive Date: 20121128
  Receipt Date: 20130129
  Transmission Date: 20140127
  Serious: Yes (Other)
  Sender: FDA-Public Use
  Company Number: US-ASTRAZENECA-2012SE86640

PATIENT
  Age: 68 Year
  Sex: Female
  Weight: 56.5 kg

DRUGS (18)
  1. NEXIUM [Suspect]
     Indication: GASTROOESOPHAGEAL REFLUX DISEASE
     Route: 048
  2. NEXIUM [Suspect]
     Indication: GASTROOESOPHAGEAL REFLUX DISEASE
     Dosage: INADVERTANTLY TOOK SECOND 40 MG
     Route: 048
     Dates: start: 20121111
  3. NEXIUM [Suspect]
     Indication: GASTROOESOPHAGEAL REFLUX DISEASE
     Route: 048
     Dates: start: 2001, end: 20121118
  4. NEXIUM [Suspect]
     Indication: GASTROOESOPHAGEAL REFLUX DISEASE
     Dosage: ONE TO TWO PACKETS OF NEXIUM 10MG ORAL SUSPENSION PER DAY
     Route: 048
     Dates: start: 20121217
  5. SYNTHROID [Concomitant]
     Route: 048
     Dates: start: 2007
  6. DIETARY CALCIUM [Concomitant]
     Route: 048
  7. PRIMERON [Concomitant]
     Route: 048
     Dates: start: 1992
  8. TESTOSTERONE [Concomitant]
     Dosage: 0.3 PL
     Route: 061
     Dates: start: 1992
  9. SIMVASTATIN [Concomitant]
     Route: 048
     Dates: start: 2002
  10. MICARDIS/BICARDIS [Concomitant]
     Indication: BLOOD PRESSURE ABNORMAL
     Dates: start: 2002
  11. MYLANTA [Concomitant]
     Dosage: PRN
  12. PEPTO-BISMOL [Concomitant]
     Dosage: PRN
  13. ALBUTEROL [Concomitant]
  14. FLONASE [Concomitant]
  15. NEILMED WASH [Concomitant]
  16. Z PAC [Concomitant]
  17. FLUCONAZOLE [Concomitant]
     Indication: FUNGAL INFECTION
  18. AZELASTINE [Concomitant]

REACTIONS (27)
  - Laryngeal oedema [Unknown]
  - Dry eye [Not Recovered/Not Resolved]
  - Nasal dryness [Not Recovered/Not Resolved]
  - Irritable bowel syndrome [Not Recovered/Not Resolved]
  - Rhinitis allergic [Unknown]
  - Osteopenia [Unknown]
  - Weight decreased [Unknown]
  - Gastrooesophageal reflux disease [Unknown]
  - Oropharyngeal pain [Unknown]
  - Fungal infection [Unknown]
  - Upper respiratory tract congestion [Unknown]
  - Pharyngitis [Unknown]
  - Sinusitis [Unknown]
  - Decreased immune responsiveness [Unknown]
  - Food allergy [Unknown]
  - Rhinitis [Unknown]
  - Seasonal allergy [Unknown]
  - Ear infection [Unknown]
  - Arthritis [Unknown]
  - Dry mouth [Not Recovered/Not Resolved]
  - Malaise [Unknown]
  - Abdominal pain upper [Not Recovered/Not Resolved]
  - Nausea [Unknown]
  - Flatulence [Unknown]
  - Dry throat [Unknown]
  - Incorrect dose administered [Unknown]
  - Drug dose omission [Unknown]
